FAERS Safety Report 19962312 (Version 1)
Quarter: 2021Q4

REPORT INFORMATION
  Report Type: Spontaneous
  Country: US (occurrence: US)
  Receive Date: 20211018
  Receipt Date: 20211018
  Transmission Date: 20220303
  Serious: No
  Sender: FDA-Public Use
  Company Number: US-LEO PHARMA-339032

PATIENT
  Sex: Female

DRUGS (1)
  1. ENSTILAR [Suspect]
     Active Substance: BETAMETHASONE DIPROPIONATE\CALCIPOTRIENE HYDRATE
     Indication: Product used for unknown indication
     Dosage: USED ENSTILAR ON THE SCALP FOR 5 DAYS (AT THE TIME OF REPORT)

REACTIONS (3)
  - Pain [Unknown]
  - Rhinorrhoea [Unknown]
  - Epistaxis [Unknown]
